FAERS Safety Report 18970556 (Version 1)
Quarter: 2021Q1

REPORT INFORMATION
  Report Type: Spontaneous
  Country: US (occurrence: US)
  Receive Date: 20210305
  Receipt Date: 20210305
  Transmission Date: 20210420
  Serious: Yes (Life-Threatening, Hospitalization, Other)
  Sender: FDA-Public Use
  Company Number: US-AUROBINDO-AUR-APL-2021-008510

PATIENT
  Age: 29 Year
  Sex: Female

DRUGS (2)
  1. LOPERAMIDE HYDROCHLORIDE TABLETS 2MG USP (OTC) [Suspect]
     Active Substance: LOPERAMIDE
     Dosage: 300 DOSAGE FORM, ONCE A DAY
     Route: 048
  2. LOPERAMIDE HYDROCHLORIDE TABLETS 2MG USP (OTC) [Suspect]
     Active Substance: LOPERAMIDE
     Indication: PRODUCT USED FOR UNKNOWN INDICATION
     Dosage: 96 DOSAGE FORM, 3 TIMES A DAY (TAKING AT LEAST ONE ENTIRE BOTTLE OF LOPERAMIDE)
     Route: 048

REACTIONS (5)
  - Confusional state [Recovered/Resolved]
  - Ventricular tachycardia [Recovered/Resolved]
  - Drug abuse [Recovered/Resolved]
  - Intentional overdose [Recovered/Resolved]
  - Torsade de pointes [Recovered/Resolved]
